FAERS Safety Report 10911974 (Version 1)
Quarter: 2015Q1

REPORT INFORMATION
  Report Type: Spontaneous
  Country: US (occurrence: None)
  Receive Date: 20150310
  Receipt Date: 20150310
  Transmission Date: 20150721
  Serious: Yes (Death)
  Sender: FDA-Public Use
  Company Number: None

PATIENT
  Age: 56 Year
  Sex: Male
  Weight: 78 kg

DRUGS (11)
  1. REMICADE [Suspect]
     Active Substance: INFLIXIMAB
     Indication: PSORIATIC ARTHROPATHY
     Dosage: SINGLE DOSE GIVEN IV OVER 3 HRS
     Route: 042
  2. BACLOFEN. [Concomitant]
     Active Substance: BACLOFEN
  3. SIMVASTATIN. [Concomitant]
     Active Substance: SIMVASTATIN
  4. AMITRYPTILINE [Concomitant]
     Active Substance: AMITRIPTYLINE
  5. VENLAFAXINE [Concomitant]
     Active Substance: VENLAFAXINE HYDROCHLORIDE
  6. GABAPENTIN. [Concomitant]
     Active Substance: GABAPENTIN
  7. OMEPRAZOLE. [Concomitant]
     Active Substance: OMEPRAZOLE
  8. DULOXETINE [Concomitant]
     Active Substance: DULOXETINE
  9. BUPROPION [Concomitant]
     Active Substance: BUPROPION
  10. METOCLOPRAMIDE. [Concomitant]
     Active Substance: METOCLOPRAMIDE
  11. METHOTREXATE [Concomitant]
     Active Substance: METHOTREXATE

REACTIONS (6)
  - Malaise [None]
  - Pyrexia [None]
  - Productive cough [None]
  - Photophobia [None]
  - Headache [None]
  - Liver function test abnormal [None]

NARRATIVE: CASE EVENT DATE: 20150227
